FAERS Safety Report 15953460 (Version 7)
Quarter: 2019Q4

REPORT INFORMATION
  Report Type: Report from Study
  Country: CA (occurrence: CA)
  Receive Date: 20190212
  Receipt Date: 20191010
  Transmission Date: 20200122
  Serious: Yes (Hospitalization, Other)
  Sender: FDA-Public Use
  Company Number: CA-JNJFOC-20181129817

PATIENT
  Age: 65 Year
  Sex: Female
  Weight: 38.56 kg

DRUGS (1)
  1. STELARA [Suspect]
     Active Substance: USTEKINUMAB
     Indication: CROHN^S DISEASE
     Route: 058
     Dates: start: 20180329

REACTIONS (10)
  - Sepsis [Recovered/Resolved]
  - Off label use [Unknown]
  - Colon cancer [Not Recovered/Not Resolved]
  - Transfusion [Unknown]
  - Weight decreased [Unknown]
  - Malnutrition [Unknown]
  - Influenza [Recovered/Resolved]
  - Arthralgia [Recovered/Resolved]
  - Product use issue [Unknown]
  - Stoma site infection [Recovered/Resolved]

NARRATIVE: CASE EVENT DATE: 20180329
